FAERS Safety Report 7913540-5 (Version None)
Quarter: 2011Q4

REPORT INFORMATION
  Report Type: 
  Country: None (occurrence: None)
  Receive Date: 20111115
  Receipt Date: 20111103
  Transmission Date: 20120403
  Serious: Yes (Other)
  Sender: FDA-Public Use
  Company Number: CA-JNJFOC-20111102756

PATIENT
  Sex: Female
  Weight: 60.8 kg

DRUGS (7)
  1. ATACAND [Concomitant]
  2. REMICADE [Suspect]
     Indication: CROHN'S DISEASE
     Dosage: EVERY 6-8 WEEKS
     Dates: start: 20080516
  3. PREVACID [Concomitant]
  4. INDAPAMIDE [Concomitant]
  5. IMURAN [Concomitant]
  6. CHOLESTYRAMINE [Concomitant]
  7. VALTREX [Concomitant]

REACTIONS (1)
  - GALLBLADDER DISORDER [None]
